FAERS Safety Report 24721811 (Version 1)
Quarter: 2024Q4

REPORT INFORMATION
  Report Type: Spontaneous
  Country: US (occurrence: None)
  Receive Date: 20241210
  Receipt Date: 20241210
  Transmission Date: 20250114
  Serious: Yes (Life-Threatening, Hospitalization)
  Sender: Public
  Company Number: None

PATIENT
  Age: 43 Year
  Sex: Male
  Weight: 150 kg

DRUGS (22)
  1. GAMMAGARD [Suspect]
     Active Substance: HUMAN IMMUNOGLOBULIN G
     Indication: Immunosuppression
     Dosage: 125 G GRAM(S) DAILY IONTRAVENOUS
     Route: 042
     Dates: start: 20241128, end: 20241129
  2. ACETAMINOPHEN [Concomitant]
     Active Substance: ACETAMINOPHEN
     Dates: start: 20241128, end: 20241128
  3. ALBUTEROL [Concomitant]
     Active Substance: ALBUTEROL
     Dates: start: 20241125
  4. AZITHROMYCIN [Concomitant]
     Active Substance: AZITHROMYCIN
     Dates: start: 20241129, end: 20241129
  5. Budesonide inhalation solution [Concomitant]
     Dates: start: 20241125
  6. Calcium gluconate sodium chloride [Concomitant]
     Dates: start: 20241126
  7. Cisatracurium infusion [Concomitant]
     Dates: start: 20241127
  8. Cyanocobalamin tablet [Concomitant]
     Dates: start: 20241125
  9. Diphenhydramine capsule [Concomitant]
     Dates: start: 20241128, end: 20241128
  10. Doxycycline Hyclate IVPB [Concomitant]
     Dates: start: 20241126, end: 20241128
  11. ENOXAPARIN [Concomitant]
     Active Substance: ENOXAPARIN
     Dates: start: 20241125
  12. Famotidine IVPB [Concomitant]
     Dates: start: 20241125, end: 20241128
  13. Potassium and sodium phosphates packets [Concomitant]
     Dates: start: 20241128, end: 20241128
  14. FENTANYL [Concomitant]
     Active Substance: FENTANYL
     Dates: start: 20241127
  15. Potassium Chloride packet and IVPB [Concomitant]
     Dates: start: 20241125
  16. FERROUS SULFATE [Concomitant]
     Active Substance: FERROUS SULFATE
     Dates: start: 20241129, end: 20241129
  17. PREDNISONE [Concomitant]
     Active Substance: PREDNISONE
     Dates: start: 20241128, end: 20241128
  18. FLUTICASONE [Concomitant]
     Active Substance: FLUTICASONE
     Dates: start: 20241126
  19. PROPOFOL [Concomitant]
     Active Substance: PROPOFOL
     Dates: start: 20241127
  20. Fluticasone-salmeterol inhaler [Concomitant]
     Dates: start: 20241125
  21. QUETIAPINE [Concomitant]
     Active Substance: QUETIAPINE
     Dates: start: 20241127
  22. FOLIC ACID [Concomitant]
     Active Substance: FOLIC ACID
     Dates: start: 20241125

REACTIONS (3)
  - Hypervolaemia [None]
  - Respiratory distress [None]
  - Oxygen saturation decreased [None]

NARRATIVE: CASE EVENT DATE: 20241128
